APPROVED DRUG PRODUCT: TAZAROTENE
Active Ingredient: TAZAROTENE
Strength: 0.05%
Dosage Form/Route: CREAM;TOPICAL
Application: A214560 | Product #001 | TE Code: AB
Applicant: SOLARIS PHARMA CORP
Approved: Nov 24, 2025 | RLD: No | RS: No | Type: RX